FAERS Safety Report 25311593 (Version 1)
Quarter: 2025Q2

REPORT INFORMATION
  Report Type: Spontaneous
  Country: FR (occurrence: FR)
  Receive Date: 20250514
  Receipt Date: 20250514
  Transmission Date: 20250716
  Serious: Yes (Other)
  Sender: SK LIFE SCIENCE
  Company Number: FR-ACRAF-2025-037526

PATIENT

DRUGS (4)
  1. XCOPRI [Suspect]
     Active Substance: CENOBAMATE
     Indication: Epilepsy
     Dosage: 12.5 MILLIGRAM, QD
     Route: 048
     Dates: start: 20250122
  2. XCOPRI [Suspect]
     Active Substance: CENOBAMATE
     Dosage: 25 MILLIGRAM, QD
     Route: 048
     Dates: start: 20250205, end: 20250214
  3. ZONEGRAN [Concomitant]
     Active Substance: ZONISAMIDE
     Indication: Product used for unknown indication
     Route: 065
  4. ESLICARBAZEPINE ACETATE [Concomitant]
     Active Substance: ESLICARBAZEPINE ACETATE
     Indication: Product used for unknown indication
     Route: 065

REACTIONS (7)
  - Pulmonary cavitation [Unknown]
  - Cough [Recovered/Resolved]
  - Haemoptysis [Recovered/Resolved]
  - Dry skin [Recovered/Resolved]
  - Intentional product misuse [Recovered/Resolved]
  - Pleural adhesion [Unknown]
  - Lymph node calcification [Unknown]

NARRATIVE: CASE EVENT DATE: 20250125
